FAERS Safety Report 7013229-3 (Version None)
Quarter: 2010Q3

REPORT INFORMATION
  Report Type: 
  Country: None (occurrence: None)
  Receive Date: 20100924
  Receipt Date: 20100921
  Transmission Date: 20110219
  Serious: Yes (Hospitalization)
  Sender: FDA-Public Use
  Company Number: ES-MERCK-1009ESP00020

PATIENT
  Age: 76 Year
  Sex: Female

DRUGS (10)
  1. SINEMET [Suspect]
     Route: 048
     Dates: start: 20050101
  2. DIAZEPAM [Concomitant]
     Route: 048
  3. ASPIRIN [Concomitant]
     Route: 048
     Dates: start: 20030124
  4. PANTOPRAZOLE SODIUM [Concomitant]
     Route: 048
     Dates: start: 20091226
  5. DIAZEPAM AND PYRIDOXINE HYDROCHLORIDE [Concomitant]
     Route: 048
  6. ENOXAPARIN SODIUM [Concomitant]
     Indication: DEEP VEIN THROMBOSIS
     Route: 058
     Dates: start: 20100505
  7. BUPROPION HYDROCHLORIDE [Suspect]
     Route: 048
     Dates: start: 20100401, end: 20100527
  8. PRAMIPEXOLE DIHYDROCHLORIDE [Concomitant]
     Route: 048
     Dates: start: 20030124
  9. ACENOCOUMAROL [Concomitant]
     Indication: DEEP VEIN THROMBOSIS
     Route: 048
     Dates: start: 20100505
  10. TROSPIUM CHLORIDE [Concomitant]
     Route: 048
     Dates: start: 20091226

REACTIONS (2)
  - DRUG INTERACTION [None]
  - DYSKINESIA [None]
